FAERS Safety Report 7957877-2 (Version None)
Quarter: 2011Q4

REPORT INFORMATION
  Report Type: 
  Country: None (occurrence: None)
  Receive Date: 20111201
  Receipt Date: 20111117
  Transmission Date: 20120403
  Serious: No
  Sender: FDA-Public Use
  Company Number: 1000018765

PATIENT
  Sex: 0

DRUGS (3)
  1. LIDOCAINE [Suspect]
     Dosage: 0.25 DOSAGE FOR (0.5 DOSAGE FORMS, 1IN 2 D),TRANSPLACENTA, 0-22 WEEKS OF AMENORRHEA
     Route: 064
  2. ESCITALOPRAM OXALATE [Suspect]
     Dosage: TRANSPLACENTAL
     Route: 064
  3. ATARAX [Suspect]
     Dosage: 3.5714 MG (25 MG, 1 IN 1 WK),TRANSPLACENTAL,0-22 WEEKS OF AMENORRHEA
     Route: 064

REACTIONS (6)
  - SPINA BIFIDA [None]
  - ARNOLD-CHIARI MALFORMATION [None]
  - TALIPES [None]
  - ABORTION INDUCED [None]
  - MATERNAL DRUGS AFFECTING FOETUS [None]
  - CONGENITAL ANOMALY [None]
